FAERS Safety Report 23427303 (Version 5)
Quarter: 2024Q1

REPORT INFORMATION
  Report Type: Report from Study
  Country: DE (occurrence: DE)
  Receive Date: 20240122
  Receipt Date: 20240305
  Transmission Date: 20240410
  Serious: Yes (Hospitalization)
  Sender: FDA-Public Use
  Company Number: DE-Merck Healthcare KGaA-2023492216

PATIENT
  Age: 70 Year
  Sex: Male
  Weight: 70 kg

DRUGS (6)
  1. AVELUMAB [Suspect]
     Active Substance: AVELUMAB
     Indication: Metastatic carcinoma of the bladder
     Dates: start: 20231117
  2. AMLODIPINE [Concomitant]
     Active Substance: AMLODIPINE BESYLATE
     Indication: Hypertension
     Route: 048
     Dates: start: 20100103
  3. BISOPROLOL [Concomitant]
     Active Substance: BISOPROLOL\BISOPROLOL FUMARATE
     Indication: Hypertension
     Route: 048
     Dates: start: 20100103
  4. MINOXIDIL [Concomitant]
     Active Substance: MINOXIDIL
     Indication: Hypertension
     Route: 048
     Dates: start: 20100103
  5. INSULIN GLARGINE [Concomitant]
     Active Substance: INSULIN GLARGINE
     Indication: Diabetes mellitus
     Route: 042
     Dates: start: 20230201
  6. TORSEMIDE [Concomitant]
     Active Substance: TORSEMIDE
     Indication: Chronic kidney disease
     Route: 048
     Dates: start: 20230201

REACTIONS (9)
  - IIIrd nerve paralysis [Recovering/Resolving]
  - Myositis [Recovering/Resolving]
  - Nausea [Recovered/Resolved]
  - Back pain [Not Recovered/Not Resolved]
  - Inflammatory marker increased [Not Recovered/Not Resolved]
  - Blood cholesterol increased [Not Recovered/Not Resolved]
  - Blood uric acid increased [Not Recovered/Not Resolved]
  - Anaemia [Not Recovered/Not Resolved]
  - Blood creatinine increased [Not Recovered/Not Resolved]

NARRATIVE: CASE EVENT DATE: 20231117
